FAERS Safety Report 8832604 (Version 2)
Quarter: 2012Q4

REPORT INFORMATION
  Report Type: 
  Country: JP (occurrence: JP)
  Receive Date: 20121010
  Receipt Date: 20121119
  Transmission Date: 20130627
  Serious: Yes (Other)
  Sender: FDA-Public Use
  Company Number: JP-BRISTOL-MYERS SQUIBB COMPANY-17015348

PATIENT
  Age: 21 Year
  Sex: Female
  Weight: 49 kg

DRUGS (5)
  1. ORENCIA FOR INJ 250 MG/VIAL [Suspect]
     Indication: RHEUMATOID ARTHRITIS
     Dosage: Initiated at 250mg
500mg from 13Jan12
     Route: 041
     Dates: start: 20110810, end: 20120817
  2. METHOTREXATE [Suspect]
     Indication: RHEUMATOID ARTHRITIS
     Dosage: Dose increased tp 10g/week
     Route: 048
     Dates: start: 20110810
  3. TAKEPRON [Concomitant]
     Indication: PROPHYLAXIS
     Route: 048
     Dates: start: 20110606
  4. MOBIC [Concomitant]
     Indication: RHEUMATOID ARTHRITIS
     Route: 048
     Dates: start: 20110706
  5. FOLIAMIN [Concomitant]
     Indication: PROPHYLAXIS
     Route: 048
     Dates: start: 20110706

REACTIONS (1)
  - Colitis ulcerative [Recovering/Resolving]
